FAERS Safety Report 10216848 (Version 1)
Quarter: 2014Q2

REPORT INFORMATION
  Report Type: Spontaneous
  Country: US (occurrence: US)
  Receive Date: 20140604
  Receipt Date: 20140604
  Transmission Date: 20141212
  Serious: Yes (Life-Threatening, Hospitalization, Disabling, Other)
  Sender: FDA-Public Use
  Company Number: US-JNJFOC-20140517574

PATIENT
  Age: 41 Year
  Sex: Female

DRUGS (4)
  1. XARELTO [Suspect]
     Indication: HYPERCOAGULATION
     Route: 048
     Dates: start: 201309, end: 20140109
  2. ASPIRIN [Suspect]
     Indication: PRODUCT USED FOR UNKNOWN INDICATION
     Route: 065
  3. CARVEDILOL [Concomitant]
     Dosage: DOSE: 1.625 (0.2)
     Route: 065
  4. PRAVACHOL [Concomitant]
     Dosage: DOSE: 140 (UNIT UNSPECIFIED)
     Route: 065

REACTIONS (2)
  - Thrombosis [Recovered/Resolved]
  - Off label use [Unknown]
